FAERS Safety Report 4297329-7 (Version None)
Quarter: 2004Q1

REPORT INFORMATION
  Report Type: 
  Country: None (occurrence: None)
  Receive Date: 20040212
  Receipt Date: 20030626
  Transmission Date: 20041129
  Serious: Yes (Other)
  Sender: FDA-Public Use
  Company Number: A03200301428

PATIENT
  Age: 25 Year
  Sex: Female
  Weight: 47.6277 kg

DRUGS (3)
  1. AMBIEN [Suspect]
     Dosage: 10 MG QD - ORAL
     Route: 048
     Dates: start: 20020701
  2. EPHEDRINE [Concomitant]
  3. CARISOPRODOL [Concomitant]

REACTIONS (4)
  - ANXIETY [None]
  - DISORIENTATION [None]
  - GAIT DISTURBANCE [None]
  - HALLUCINATION [None]
